FAERS Safety Report 16440564 (Version 1)
Quarter: 2019Q3

REPORT INFORMATION
  Report Type: Spontaneous
  Country: US (occurrence: US)
  Receive Date: 20190617
  Receipt Date: 20190617
  Transmission Date: 20191004
  Serious: No
  Sender: FDA-Public Use
  Company Number: None

PATIENT
  Age: 92 Year
  Sex: Female

DRUGS (1)
  1. ACETAMINOPHEN AND CODEINE [Suspect]
     Active Substance: ACETAMINOPHEN\CODEINE PHOSPHATE
     Indication: PAIN
     Route: 048
     Dates: start: 20190521, end: 20190615

REACTIONS (4)
  - Amnesia [None]
  - Product dispensing error [None]
  - Throat irritation [None]
  - Foreign body in respiratory tract [None]

NARRATIVE: CASE EVENT DATE: 20190521
